FAERS Safety Report 25251809 (Version 2)
Quarter: 2025Q2

REPORT INFORMATION
  Report Type: Spontaneous
  Country: US (occurrence: US)
  Receive Date: 20250429
  Receipt Date: 20250429
  Transmission Date: 20250717
  Serious: Yes (Other)
  Sender: AMGEN
  Company Number: US-AMGEN-USASP2025083819

PATIENT

DRUGS (2)
  1. TEPEZZA [Suspect]
     Active Substance: TEPROTUMUMAB-TRBW
     Indication: Product used for unknown indication
     Route: 040
  2. TEPEZZA [Suspect]
     Active Substance: TEPROTUMUMAB-TRBW
     Route: 040
     Dates: start: 20250411

REACTIONS (3)
  - Exophthalmos [Unknown]
  - Drug ineffective [Unknown]
  - Eyelid retraction [Unknown]
